FAERS Safety Report 23165645 (Version 1)
Quarter: 2023Q4

REPORT INFORMATION
  Report Type: Spontaneous
  Country: US (occurrence: US)
  Receive Date: 20231109
  Receipt Date: 20231109
  Transmission Date: 20240109
  Serious: No
  Sender: FDA-Public Use
  Company Number: US-GUERBET / LLC-US-20230066

PATIENT
  Age: 65 Year
  Sex: Female
  Weight: 88 kg

DRUGS (1)
  1. DOTAREM [Suspect]
     Active Substance: GADOTERATE MEGLUMINE
     Indication: Magnetic resonance imaging breast
     Dosage: NO PREVIOUS EXAMINATION WITH A CONTRAST AGENT.
     Route: 042
     Dates: start: 20230814, end: 20230814

REACTIONS (3)
  - Sneezing [Recovered/Resolved]
  - Nasal congestion [Recovered/Resolved]
  - Product use in unapproved indication [Recovered/Resolved]

NARRATIVE: CASE EVENT DATE: 20230814
